FAERS Safety Report 14979905 (Version 1)
Quarter: 2018Q2

REPORT INFORMATION
  Report Type: Spontaneous
  Country: US (occurrence: US)
  Receive Date: 20180606
  Receipt Date: 20180606
  Transmission Date: 20180711
  Serious: Yes (Hospitalization, Other)
  Sender: FDA-Public Use
  Company Number: US-PURDUE PHARMA-GBR-2018-0056474

PATIENT
  Age: 18 Year
  Sex: Female

DRUGS (3)
  1. MIRTAZAPINE. [Concomitant]
     Active Substance: MIRTAZAPINE
     Indication: PAIN MANAGEMENT
  2. GABAPENTIN. [Concomitant]
     Active Substance: GABAPENTIN
     Indication: PAIN MANAGEMENT
  3. HYDROMORPHONE HYDROCHLORIDE. [Suspect]
     Active Substance: HYDROMORPHONE HYDROCHLORIDE
     Indication: PAIN MANAGEMENT
     Route: 048

REACTIONS (19)
  - Lipase increased [Unknown]
  - Hyporesponsive to stimuli [Unknown]
  - Hyponatraemia [Unknown]
  - Hypertension [Unknown]
  - Constipation [Unknown]
  - Depression [Unknown]
  - Decreased appetite [Unknown]
  - Abdominal pain lower [Unknown]
  - Staring [Unknown]
  - Anxiety [Unknown]
  - Vomiting [Unknown]
  - Aspartate aminotransferase increased [Unknown]
  - Alanine aminotransferase increased [Unknown]
  - Urinary retention [Unknown]
  - Tachycardia [Unknown]
  - Weight decreased [Unknown]
  - Nausea [Unknown]
  - Porphyria acute [Unknown]
  - Muscular weakness [Unknown]
